FAERS Safety Report 9300818 (Version 2)
Quarter: 2013Q2

REPORT INFORMATION
  Report Type: Report from Study
  Country: PT (occurrence: PT)
  Receive Date: 20130521
  Receipt Date: 20130619
  Transmission Date: 20140414
  Serious: Yes (Life-Threatening, Hospitalization, Other)
  Sender: FDA-Public Use
  Company Number: PT-PFIZER INC-2013154950

PATIENT
  Age: 68 Year
  Sex: Male
  Weight: 74.4 kg

DRUGS (5)
  1. IRINOTECAN HCL [Suspect]
     Indication: COLORECTAL CANCER METASTATIC
     Dosage: 180 MG/M2, CYCLIC (1 IN 2 WEEK)
     Route: 042
     Dates: start: 20130218
  2. BEVACIZUMAB [Suspect]
     Indication: COLORECTAL CANCER METASTATIC
     Dosage: 2.5 MG/KG, WEEKLY
     Route: 042
     Dates: start: 20130218
  3. LEUCOVORIN CALCIUM [Suspect]
     Indication: COLORECTAL CANCER METASTATIC
     Dosage: 200 UNK, CYCLIC (1 IN 2 WEEKS)
     Route: 042
     Dates: start: 20130218
  4. 5-FU [Suspect]
     Indication: COLORECTAL CANCER METASTATIC
     Dosage: 400 MG/M2, CYCLIC
     Route: 040
     Dates: start: 20130218
  5. 5-FU [Suspect]
     Dosage: 2400 MG/M2, UNK
     Route: 042

REACTIONS (2)
  - Hyponatraemia [Recovered/Resolved]
  - Pulmonary embolism [Recovered/Resolved]
